FAERS Safety Report 8574366-5 (Version None)
Quarter: 2012Q3

REPORT INFORMATION
  Report Type: 
  Country: None (occurrence: None)
  Receive Date: 20120806
  Receipt Date: 20120802
  Transmission Date: 20120928
  Serious: Yes (Death, Hospitalization, Other)
  Sender: FDA-Public Use
  Company Number: AU-B.I. PHARMACEUTICALS,INC./RIDGEFIELD-2012-AU-01350AU

PATIENT
  Sex: Male

DRUGS (6)
  1. ALLOPURINOL [Concomitant]
     Dosage: 100 MG
  2. PRADAXA [Suspect]
     Indication: ATRIAL FIBRILLATION
     Dosage: 220 MG
     Dates: start: 20110626, end: 20120701
  3. DIGOXIN [Concomitant]
     Dosage: 62.5 MG
  4. DOXEPIN [Concomitant]
     Indication: INSOMNIA
  5. FUROSEMIDE [Concomitant]
     Dosage: 20 MG
  6. SLOW-K [Concomitant]

REACTIONS (5)
  - CARDIAC FAILURE [None]
  - FALL [None]
  - SOFT TISSUE HAEMORRHAGE [None]
  - HAEMOGLOBIN DECREASED [None]
  - HIP FRACTURE [None]
